FAERS Safety Report 9660864 (Version 1)
Quarter: 2013Q4

REPORT INFORMATION
  Report Type: Spontaneous
  Country: US (occurrence: US)
  Receive Date: 20131031
  Receipt Date: 20131031
  Transmission Date: 20140711
  Serious: Yes (Other)
  Sender: FDA-Public Use
  Company Number: US-PFIZER INC-2013310585

PATIENT
  Age: 86 Year
  Sex: Male

DRUGS (4)
  1. CALAN SR [Suspect]
     Indication: HYPERTENSION
     Dosage: 240 MG, 1X/DAY
  2. VITAMIN D [Concomitant]
     Dosage: UNK, 1X/DAY
  3. IRON [Concomitant]
     Dosage: UNK, 2X/WEEK
  4. BABY ASPIRIN [Concomitant]
     Dosage: UNK

REACTIONS (1)
  - Macular degeneration [Unknown]
